FAERS Safety Report 19399778 (Version 1)
Quarter: 2021Q2

REPORT INFORMATION
  Report Type: Spontaneous
  Country: CN (occurrence: CN)
  Receive Date: 20210610
  Receipt Date: 20210610
  Transmission Date: 20210717
  Serious: Yes (Other)
  Sender: FDA-Public Use
  Company Number: CN-ASTRAZENECA-2021A514869

PATIENT
  Age: 27214 Day
  Sex: Female
  Weight: 65 kg

DRUGS (3)
  1. TICAGRELOR. [Suspect]
     Active Substance: TICAGRELOR
     Indication: SYMPTOMATIC TREATMENT
     Route: 048
     Dates: start: 20210103, end: 20210108
  2. BAYASPIRIN [Concomitant]
     Active Substance: ASPIRIN
     Indication: ARTERIOSCLEROSIS
     Route: 048
     Dates: start: 20201231, end: 20210108
  3. BAYASPIRIN [Concomitant]
     Active Substance: ASPIRIN
     Indication: SYMPTOMATIC TREATMENT
     Route: 048
     Dates: start: 20201231, end: 20210108

REACTIONS (1)
  - Myelosuppression [Recovered/Resolved]

NARRATIVE: CASE EVENT DATE: 20210107
